FAERS Safety Report 9907621 (Version 1)
Quarter: 2014Q1

REPORT INFORMATION
  Report Type: Spontaneous
  Country: US (occurrence: US)
  Receive Date: 20140219
  Receipt Date: 20140219
  Transmission Date: 20141002
  Serious: Yes (Other)
  Sender: FDA-Public Use
  Company Number: US-GLENMARK GENERICS INC.-2014GMK008509

PATIENT
  Sex: Female

DRUGS (1)
  1. LEVOFLOXACIN [Suspect]
     Indication: PRODUCT USED FOR UNKNOWN INDICATION
     Dosage: UNK

REACTIONS (7)
  - Eosinophilic pneumonia [Unknown]
  - Pulmonary eosinophilia [Unknown]
  - Rash pruritic [Unknown]
  - Pyrexia [Unknown]
  - Dyspnoea [Unknown]
  - Rash erythematous [Unknown]
  - Eosinophilia [Recovering/Resolving]
